FAERS Safety Report 10870352 (Version 2)
Quarter: 2015Q2

REPORT INFORMATION
  Report Type: Spontaneous
  Country: US (occurrence: US)
  Receive Date: 20150226
  Receipt Date: 20150526
  Transmission Date: 20150821
  Serious: Yes (Other)
  Sender: FDA-Public Use
  Company Number: US-PFIZER INC-2015066469

PATIENT
  Age: 45 Year
  Sex: Male
  Weight: 128 kg

DRUGS (5)
  1. LIPITOR [Suspect]
     Active Substance: ATORVASTATIN CALCIUM
     Indication: BLOOD CHOLESTEROL INCREASED
     Dosage: 70 MG, DAILY
     Route: 048
  2. CRESTOR [Suspect]
     Active Substance: ROSUVASTATIN CALCIUM
     Indication: BLOOD CHOLESTEROL INCREASED
  3. LIPITOR [Suspect]
     Active Substance: ATORVASTATIN CALCIUM
     Dosage: 40 MG, DAILY
  4. LIPITOR [Suspect]
     Active Substance: ATORVASTATIN CALCIUM
     Dosage: 20 MG, DAILY
  5. BYDUREON [Concomitant]
     Active Substance: EXENATIDE
     Indication: DIABETES MELLITUS
     Dosage: UNK, WEEKLY

REACTIONS (9)
  - Hepatic enzyme increased [Unknown]
  - Blood cholesterol abnormal [Unknown]
  - Hepatic cirrhosis [Not Recovered/Not Resolved]
  - Bone disorder [Unknown]
  - Diabetes mellitus [Not Recovered/Not Resolved]
  - Splenomegaly [Not Recovered/Not Resolved]
  - Memory impairment [Not Recovered/Not Resolved]
  - Iron overload [Not Recovered/Not Resolved]
  - Hepatomegaly [Not Recovered/Not Resolved]
